FAERS Safety Report 15548320 (Version 2)
Quarter: 2018Q4

REPORT INFORMATION
  Report Type: Report from Study
  Country: JP (occurrence: JP)
  Receive Date: 20181024
  Receipt Date: 20181107
  Transmission Date: 20190205
  Serious: Yes (Other)
  Sender: FDA-Public Use
  Company Number: JP-BRISTOL-MYERS SQUIBB COMPANY-BMS-2018-098792

PATIENT
  Age: 57 Year
  Sex: Male

DRUGS (1)
  1. ASUNAPREVIR,DACLATASVIR DIHYDROCHLORIDE,BECLABUVIR HYDROCHLORIDE [Suspect]
     Active Substance: ASUNAPREVIR\BECLABUVIR HYDROCHLORIDE\DACLATASVIR DIHYDROCHLORIDE
     Indication: HEPATITIS C
     Dosage: 1 TAB, BID
     Route: 065

REACTIONS (3)
  - Drug resistance [Unknown]
  - Hyperbilirubinaemia [Unknown]
  - Virologic failure [Unknown]
